FAERS Safety Report 6806069-9 (Version None)
Quarter: 2010Q2

REPORT INFORMATION
  Report Type: 
  Country: None (occurrence: None)
  Receive Date: 20100629
  Receipt Date: 20071217
  Transmission Date: 20101027
  Serious: No
  Sender: FDA-Public Use
  Company Number: US-PFIZER INC-2007102850

PATIENT
  Age: 64 Year
  Sex: Female
  Weight: 73.636 kg

DRUGS (7)
  1. TIKOSYN [Suspect]
     Indication: ATRIAL FIBRILLATION
     Dates: start: 20071017
  2. VERAPAMIL [Suspect]
     Dates: start: 20071129
  3. DIGITEK [Concomitant]
     Dates: end: 20071129
  4. LISINOPRIL [Concomitant]
     Dates: end: 20071129
  5. WARFARIN SODIUM [Concomitant]
  6. SPIRONOLACTONE [Concomitant]
  7. RED YEAST RICE [Concomitant]
     Indication: BLOOD CHOLESTEROL

REACTIONS (2)
  - ATRIAL FIBRILLATION [None]
  - CONTRAINDICATION TO MEDICAL TREATMENT [None]
